FAERS Safety Report 23805716 (Version 1)
Quarter: 2024Q2

REPORT INFORMATION
  Report Type: Spontaneous
  Country: BR (occurrence: BR)
  Receive Date: 20240502
  Receipt Date: 20240502
  Transmission Date: 20240716
  Serious: Yes (Other)
  Sender: FDA-Public Use
  Company Number: BR-CHEPLA-2024005311

PATIENT
  Sex: Female
  Weight: 53 kg

DRUGS (10)
  1. CLONAZEPAM [Suspect]
     Active Substance: CLONAZEPAM
     Indication: Anxiety
     Dosage: RIVOTRIL 0.5 MG
     Route: 048
     Dates: start: 2000, end: 2011
  2. CLONAZEPAM [Suspect]
     Active Substance: CLONAZEPAM
     Indication: Therapeutic response increased
     Dosage: RIVOTRIL 0.5 MG
     Route: 048
     Dates: start: 2000, end: 2011
  3. CLONAZEPAM [Suspect]
     Active Substance: CLONAZEPAM
     Indication: Anxiety
     Dosage: RIVOTRIL 0.5 MG
     Route: 048
     Dates: start: 2011, end: 2020
  4. CLONAZEPAM [Suspect]
     Active Substance: CLONAZEPAM
     Indication: Therapeutic response increased
     Dosage: RIVOTRIL 0.5 MG
     Route: 048
     Dates: start: 2011, end: 2020
  5. CLONAZEPAM [Suspect]
     Active Substance: CLONAZEPAM
     Indication: Anxiety
     Dosage: RIVOTRIL 0.5 MG
     Route: 048
     Dates: start: 2020, end: 20240419
  6. CLONAZEPAM [Suspect]
     Active Substance: CLONAZEPAM
     Indication: Therapeutic response increased
     Dosage: RIVOTRIL 0.5 MG
     Route: 048
     Dates: start: 2020, end: 20240419
  7. CLONAZEPAM [Suspect]
     Active Substance: CLONAZEPAM
     Indication: Anxiety
     Dosage: RIVOTRIL 0.25 MG
     Route: 048
     Dates: start: 20240420, end: 20240420
  8. CLONAZEPAM [Suspect]
     Active Substance: CLONAZEPAM
     Indication: Therapeutic response increased
     Dosage: RIVOTRIL 0.25 MG
     Route: 048
     Dates: start: 20240420, end: 20240420
  9. CLONAZEPAM [Suspect]
     Active Substance: CLONAZEPAM
     Indication: Anxiety
     Dosage: RIVOTRIL 0.5 MG
     Route: 048
     Dates: start: 20240421, end: 20240421
  10. CLONAZEPAM [Suspect]
     Active Substance: CLONAZEPAM
     Indication: Therapeutic response increased
     Dosage: RIVOTRIL 0.5 MG
     Route: 048
     Dates: start: 20240421, end: 20240421

REACTIONS (15)
  - Drug dependence [Not Recovered/Not Resolved]
  - Cerebrovascular accident [Recovered/Resolved]
  - Cerebrovascular accident [Recovered/Resolved]
  - Cerebrovascular accident [Recovered/Resolved]
  - Epilepsy [Not Recovered/Not Resolved]
  - Liver disorder [Not Recovered/Not Resolved]
  - Cholangitis [Recovered/Resolved]
  - Somnolence [Recovered/Resolved]
  - Product use in unapproved indication [Recovered/Resolved]
  - Visual impairment [Recovered/Resolved]
  - Gallbladder operation [Recovered/Resolved]
  - Head discomfort [Recovered/Resolved]
  - Malaise [Recovered/Resolved]
  - Abdominal pain upper [Recovered/Resolved]
  - Balance disorder [Recovered/Resolved]

NARRATIVE: CASE EVENT DATE: 20000101
